FAERS Safety Report 8837388 (Version 1)
Quarter: 2012Q4

REPORT INFORMATION
  Report Type: 
  Country: US (occurrence: US)
  Receive Date: 20121012
  Receipt Date: 20121012
  Transmission Date: 20130627
  Serious: No
  Sender: FDA-Public Use
  Company Number: US-PFIZER INC-2012253584

PATIENT
  Age: 61 Year
  Sex: Male
  Weight: 81.63 kg

DRUGS (4)
  1. DILANTIN-125 [Suspect]
     Indication: GRAND MAL CONVULSION
     Dosage: 500 mg, daily
     Dates: start: 1980
  2. STRATTERA [Concomitant]
     Indication: ANXIETY
     Dosage: 80 mg, daily
  3. STRATTERA [Concomitant]
     Indication: DEPRESSION
  4. STRATTERA [Concomitant]
     Indication: ATTENTION DEFICIT/HYPERACTIVITY DISORDER

REACTIONS (1)
  - Drug screen false positive [Unknown]
